FAERS Safety Report 9628702 (Version 2)
Quarter: 2019Q4

REPORT INFORMATION
  Report Type: Spontaneous
  Country: UA (occurrence: UA)
  Receive Date: 20131017
  Receipt Date: 20191230
  Transmission Date: 20200122
  Serious: Yes (Hospitalization, Other)
  Sender: FDA-Public Use
  Company Number: UA-AMGEN-UKRSP2013071896

PATIENT

DRUGS (3)
  1. DOXORUBICIN [Concomitant]
     Active Substance: DOXORUBICIN
     Indication: BREAST CANCER
     Dosage: 60 MG/M2, Q3WK UPTO 4 CYCLES
     Route: 040
  2. PEGFILGRASTIM [Suspect]
     Active Substance: PEGFILGRASTIM
     Indication: PROPHYLAXIS
     Dosage: 6 MG, 24 HR AFTER CHEMO ON DAY 2
     Route: 058
  3. DOCETAXEL. [Concomitant]
     Active Substance: DOCETAXEL
     Indication: BREAST CANCER
     Dosage: 75 MG/M2, Q3WK UPTO 4 CYCLES
     Route: 040

REACTIONS (8)
  - Asthenia [Unknown]
  - Nausea [Unknown]
  - Bone pain [Unknown]
  - Erythema [Unknown]
  - Alopecia [Unknown]
  - Febrile neutropenia [Unknown]
  - Leukopenia [Unknown]
  - Vomiting [Unknown]
